FAERS Safety Report 15627170 (Version 1)
Quarter: 2018Q4

REPORT INFORMATION
  Report Type: Spontaneous
  Country: US (occurrence: US)
  Receive Date: 20181113
  Receipt Date: 20181113
  Transmission Date: 20190205
  Serious: Yes (Other)
  Sender: FDA-Public Use
  Company Number: None

PATIENT
  Age: 50 Year
  Sex: Male
  Weight: 125.6 kg

DRUGS (12)
  1. GLIPIZIDE 5MG [Concomitant]
     Active Substance: GLIPIZIDE
     Dates: start: 20181025, end: 20181026
  2. METOPROLOL TARTRATE 100MG [Concomitant]
     Active Substance: METOPROLOL TARTRATE
     Dates: start: 20181025, end: 20181026
  3. LANTUS 10 UNITS [Concomitant]
     Dates: start: 20181025, end: 20181025
  4. APIXABAN 5 MG [Concomitant]
     Active Substance: APIXABAN
     Dates: start: 20181025, end: 20181026
  5. HUMALOG [Concomitant]
     Active Substance: INSULIN LISPRO
     Dates: start: 20181025, end: 20181026
  6. ATORVASTATIN 40MG [Concomitant]
     Active Substance: ATORVASTATIN
     Dates: start: 20181025, end: 20181025
  7. PROPOFOL. [Concomitant]
     Active Substance: PROPOFOL
     Dates: start: 20181025, end: 20181025
  8. FLECAINIDE 100MG [Concomitant]
     Dates: start: 20181025, end: 20181026
  9. PROTAMINE [Concomitant]
     Active Substance: PROTAMINE
     Dates: start: 20181025, end: 20181025
  10. HEPARIN [Suspect]
     Active Substance: HEPARIN SODIUM
     Indication: CARDIAC ABLATION
     Route: 042
     Dates: start: 20181025, end: 20181025
  11. BUPIVACAINE 0.5% [Concomitant]
     Active Substance: BUPIVACAINE
     Dates: start: 20181025, end: 20181025
  12. IOPAMIDOL 76% [Concomitant]
     Dates: start: 20181025, end: 20181025

REACTIONS (1)
  - Drug effect incomplete [None]

NARRATIVE: CASE EVENT DATE: 20181025
